FAERS Safety Report 17633738 (Version 1)
Quarter: 2020Q2

REPORT INFORMATION
  Report Type: Spontaneous
  Country: US (occurrence: US)
  Receive Date: 20200406
  Receipt Date: 20200406
  Transmission Date: 20200713
  Serious: No
  Sender: FDA-Public Use
  Company Number: US-GALDERMA-US2020001461

PATIENT
  Age: 21 Year
  Sex: Male

DRUGS (2)
  1. DIFFERIN GENTLE CLEANSER (COSMETICS) [Suspect]
     Active Substance: COSMETICS
     Indication: ACNE
     Dosage: 4 OZ
     Route: 061
     Dates: start: 202001, end: 202001
  2. DIFFERIN GEL [Suspect]
     Active Substance: ADAPALENE
     Indication: ACNE
     Dosage: 0.1%,
     Route: 061
     Dates: start: 202001, end: 202001

REACTIONS (4)
  - Erythema [Recovered/Resolved]
  - Rash macular [Recovered/Resolved]
  - Skin irritation [Recovered/Resolved]
  - Swelling face [Recovered/Resolved]

NARRATIVE: CASE EVENT DATE: 202001
